FAERS Safety Report 6443805-8 (Version None)
Quarter: 2009Q4

REPORT INFORMATION
  Report Type: 
  Country: None (occurrence: None)
  Receive Date: 20091117
  Receipt Date: 20091104
  Transmission Date: 20100525
  Serious: Yes (Other)
  Sender: FDA-Public Use
  Company Number: PHHY2009DE48392

PATIENT
  Age: 82 Year
  Sex: Male
  Weight: 67 kg

DRUGS (3)
  1. GLEEVEC [Suspect]
     Indication: GASTROINTESTINAL STROMAL TUMOUR
     Dosage: 400 MG DAILY
     Route: 048
     Dates: start: 20090501, end: 20090801
  2. HALDOL [Concomitant]
     Indication: RESTLESSNESS
     Dosage: 3 GTT DROP DAILY
     Route: 048
     Dates: start: 20090701
  3. OMEPRAZOLE [Concomitant]
     Indication: GASTROOESOPHAGEAL REFLUX DISEASE
     Dosage: 40

REACTIONS (3)
  - CHOLANGITIS SCLEROSING [None]
  - HEPATIC ENZYME INCREASED [None]
  - JAUNDICE [None]
